FAERS Safety Report 13318460 (Version 1)
Quarter: 2017Q1

REPORT INFORMATION
  Report Type: Spontaneous
  Country: US (occurrence: US)
  Receive Date: 20170310
  Receipt Date: 20170310
  Transmission Date: 20170428
  Serious: No
  Sender: FDA-Public Use
  Company Number: US-009507513-1702USA004815

PATIENT
  Sex: Female

DRUGS (1)
  1. NEXPLANON [Suspect]
     Active Substance: ETONOGESTREL
     Dosage: 1 ROD (68 MG) EVERY 3 YEARS
     Route: 059
     Dates: start: 20170124

REACTIONS (4)
  - Complication associated with device [Not Recovered/Not Resolved]
  - Limb discomfort [Unknown]
  - Migration of implanted drug [Not Recovered/Not Resolved]
  - Device kink [Not Recovered/Not Resolved]
